FAERS Safety Report 13086130 (Version 1)
Quarter: 2017Q1

REPORT INFORMATION
  Report Type: Spontaneous
  Country: IN (occurrence: IN)
  Receive Date: 20170104
  Receipt Date: 20170104
  Transmission Date: 20170428
  Serious: Yes (Other)
  Sender: FDA-Public Use
  Company Number: IN-MYLANLABS-2016M1059412

PATIENT

DRUGS (9)
  1. VECURONIUM [Suspect]
     Active Substance: VECURONIUM BROMIDE
  2. DEXAMETHASONE. [Suspect]
     Active Substance: DEXAMETHASONE
  3. METHYLPREDNISOLONE. [Suspect]
     Active Substance: METHYLPREDNISOLONE
  4. METOCLOPRAMIDE. [Suspect]
     Active Substance: METOCLOPRAMIDE
  5. THIOPENTAL SODIUM. [Suspect]
     Active Substance: THIOPENTAL SODIUM
  6. RANITIDINE. [Suspect]
     Active Substance: RANITIDINE
  7. SEVOFLURANE. [Suspect]
     Active Substance: SEVOFLURANE
  8. SUCCINYLCHOLINE CHLORIDE. [Suspect]
     Active Substance: SUCCINYLCHOLINE CHLORIDE
  9. NITROUS OXIDE. [Suspect]
     Active Substance: NITROUS OXIDE

REACTIONS (5)
  - Neonatal tachypnoea [Recovered/Resolved]
  - Low birth weight baby [Unknown]
  - Foetal exposure during pregnancy [Recovered/Resolved]
  - Premature baby [Unknown]
  - Neonatal tachycardia [Recovered/Resolved]
